FAERS Safety Report 8760753 (Version 1)
Quarter: 2012Q4

REPORT INFORMATION
  Report Type: 
  Country: US (occurrence: US)
  Receive Date: 20120830
  Receipt Date: 20120830
  Transmission Date: 20130627
  Serious: No
  Sender: FDA-Public Use
  Company Number: US-009507513-1208USA008124

PATIENT

DRUGS (2)
  1. PROPECIA [Suspect]
     Route: 048
  2. SIMVASTATIN TABLETS, USP [Concomitant]

REACTIONS (2)
  - Drug intolerance [Unknown]
  - Pain [Unknown]
